FAERS Safety Report 14347506 (Version 1)
Quarter: 2018Q1

REPORT INFORMATION
  Report Type: Spontaneous
  Country: US (occurrence: US)
  Receive Date: 20180103
  Receipt Date: 20180103
  Transmission Date: 20180509
  Serious: Yes (Other)
  Sender: FDA-Public Use
  Company Number: US-LEITERS-2038256

PATIENT

DRUGS (1)
  1. CYCLOPENTOLATE HCL 1%/TROPICAMIDE 1%/PHENYLEPHRINE HCL 2.5% IN SWFI [Suspect]
     Active Substance: CYCLOPENTOLATE\PHENYLEPHRINE\TROPICAMIDE
     Indication: CATARACT OPERATION
     Route: 047

REACTIONS (2)
  - Endophthalmitis [None]
  - Toxic anterior segment syndrome [None]
